FAERS Safety Report 7518471-0 (Version None)
Quarter: 2011Q2

REPORT INFORMATION
  Report Type: 
  Country: None (occurrence: None)
  Receive Date: 20110601
  Receipt Date: 20110601
  Transmission Date: 20111010
  Serious: Yes (Other)
  Sender: FDA-Public Use
  Company Number: None

PATIENT
  Age: 61 Year
  Sex: Female
  Weight: 87.5442 kg

DRUGS (1)
  1. CRESTOR [Suspect]
     Indication: CORONARY ARTERY DISEASE
     Dosage: 20 MG ONCE DAILY PO
     Route: 048
     Dates: start: 20080109, end: 20110418

REACTIONS (4)
  - MUSCULAR WEAKNESS [None]
  - TREMOR [None]
  - MUSCLE SPASMS [None]
  - GAIT DISTURBANCE [None]
